FAERS Safety Report 21364875 (Version 1)
Quarter: 2022Q3

REPORT INFORMATION
  Report Type: Spontaneous
  Country: TR (occurrence: TR)
  Receive Date: 20220922
  Receipt Date: 20220922
  Transmission Date: 20221026
  Serious: Yes (Other)
  Sender: FDA-Public Use
  Company Number: None

PATIENT
  Age: 10 Year
  Sex: Male

DRUGS (2)
  1. TOPOTECAN [Suspect]
     Active Substance: TOPOTECAN HYDROCHLORIDE
     Indication: Retinoblastoma
     Dosage: 6 AND 7
     Route: 013
  2. MELPHALAN [Concomitant]
     Active Substance: MELPHALAN
     Indication: Retinoblastoma
     Dosage: AT 30, 32, 35 AND 40 MG
     Route: 013

REACTIONS (1)
  - Cataract nuclear [Recovered/Resolved]
